FAERS Safety Report 5479545-1 (Version None)
Quarter: 2007Q4

REPORT INFORMATION
  Report Type: 
  Country: None (occurrence: None)
  Receive Date: 20071008
  Receipt Date: 20070927
  Transmission Date: 20080405
  Serious: Yes (Hospitalization, Other)
  Sender: FDA-Public Use
  Company Number: US-ROCHE-475895

PATIENT
  Age: 55 Year
  Sex: Female

DRUGS (5)
  1. PEGASYS [Suspect]
     Route: 065
     Dates: start: 20060401, end: 20061205
  2. PEGASYS [Suspect]
     Route: 065
     Dates: start: 20061219, end: 20070401
  3. COPEGUS [Suspect]
     Route: 048
     Dates: start: 20060401, end: 20061205
  4. COPEGUS [Suspect]
     Route: 048
     Dates: start: 20061216, end: 20070401
  5. METHADONE HCL [Concomitant]

REACTIONS (11)
  - ABDOMINAL PAIN [None]
  - ADVERSE EVENT [None]
  - ALOPECIA [None]
  - CONFUSIONAL STATE [None]
  - DELIRIUM [None]
  - DERMATITIS [None]
  - HERNIA REPAIR [None]
  - INTRA-ABDOMINAL HAEMORRHAGE [None]
  - LETHARGY [None]
  - PYREXIA [None]
  - THROMBOSIS [None]
